FAERS Safety Report 16287855 (Version 5)
Quarter: 2019Q2

REPORT INFORMATION
  Report Type: Report from Study
  Country: BR (occurrence: BR)
  Receive Date: 20190508
  Receipt Date: 20190625
  Transmission Date: 20190711
  Serious: Yes (Hospitalization, Other)
  Sender: FDA-Public Use
  Company Number: PHHY2018BR049930

PATIENT
  Age: 55 Year
  Sex: Female
  Weight: 84 kg

DRUGS (5)
  1. COSENTYX [Suspect]
     Active Substance: SECUKINUMAB
     Dosage: 150 MG, UNK
     Route: 058
  2. COSENTYX [Suspect]
     Active Substance: SECUKINUMAB
     Indication: PSORIATIC ARTHROPATHY
     Dosage: 300 MG, QW
     Route: 058
     Dates: start: 20180626
  3. COSENTYX [Suspect]
     Active Substance: SECUKINUMAB
     Dosage: 150 MG, UNK (1 PEN)
     Route: 058
     Dates: start: 20190613
  4. METHOTREXATE. [Concomitant]
     Active Substance: METHOTREXATE
     Indication: PAIN
     Route: 065
  5. COSENTYX [Suspect]
     Active Substance: SECUKINUMAB
     Dosage: 300 MG, QMO
     Route: 058
     Dates: start: 20180703

REACTIONS (23)
  - Erythema [Not Recovered/Not Resolved]
  - Pain [Not Recovered/Not Resolved]
  - Mobility decreased [Recovering/Resolving]
  - Skin infection [Recovered/Resolved]
  - Skin warm [Unknown]
  - Skin lesion [Recovering/Resolving]
  - Infection [Unknown]
  - Therapeutic product effect incomplete [Not Recovered/Not Resolved]
  - Lymphadenitis bacterial [Not Recovered/Not Resolved]
  - Inguinal mass [Recovering/Resolving]
  - Macule [Recovering/Resolving]
  - Malaise [Recovering/Resolving]
  - Groin abscess [Unknown]
  - Influenza [Unknown]
  - Memory impairment [Not Recovered/Not Resolved]
  - Peau d^orange [Unknown]
  - Fluid retention [Unknown]
  - Skin swelling [Unknown]
  - Furuncle [Recovering/Resolving]
  - Decreased immune responsiveness [Not Recovered/Not Resolved]
  - Lymphadenopathy [Recovered/Resolved]
  - Cellulitis [Recovering/Resolving]
  - Skin discolouration [Unknown]

NARRATIVE: CASE EVENT DATE: 20180705
